FAERS Safety Report 5479419-6 (Version None)
Quarter: 2007Q4

REPORT INFORMATION
  Report Type: 
  Country: None (occurrence: None)
  Receive Date: 20071003
  Receipt Date: 20071003
  Transmission Date: 20080405
  Serious: Yes (Other)
  Sender: FDA-Public Use
  Company Number: None

PATIENT

DRUGS (4)
  1. SERTRALINE HCL [Suspect]
     Indication: DEPRESSION
     Dosage: ONE  DAILY  PO
     Route: 048
     Dates: start: 20061206, end: 20070927
  2. PROZAC [Concomitant]
  3. PAXIL [Concomitant]
  4. CYMBALTA [Concomitant]

REACTIONS (2)
  - ANXIETY [None]
  - SUICIDAL IDEATION [None]
